FAERS Safety Report 13114332 (Version 2)
Quarter: 2017Q1

REPORT INFORMATION
  Report Type: Spontaneous
  Country: DK (occurrence: DK)
  Receive Date: 20170113
  Receipt Date: 20170119
  Transmission Date: 20170428
  Serious: Yes (Other)
  Sender: FDA-Public Use
  Company Number: DK-ASTRAZENECA-2016SF36196

PATIENT
  Age: 15 Year
  Sex: Male

DRUGS (4)
  1. SERTRALINE [Suspect]
     Active Substance: SERTRALINE HYDROCHLORIDE
     Dosage: INCREASED TO 50 MG
     Route: 065
     Dates: start: 2013
  2. SERTRALINE [Suspect]
     Active Substance: SERTRALINE HYDROCHLORIDE
     Dosage: 100.0MG UNKNOWN
     Route: 065
     Dates: start: 201503
  3. SERTRALINE [Suspect]
     Active Substance: SERTRALINE HYDROCHLORIDE
     Dosage: 50.0MG UNKNOWN
     Route: 065
     Dates: end: 2016
  4. QUETIAPINE. [Suspect]
     Active Substance: QUETIAPINE
     Indication: INSOMNIA
     Dosage: 25.0MG UNKNOWN
     Route: 048
     Dates: start: 2015

REACTIONS (9)
  - Facial bones fracture [Unknown]
  - Memory impairment [Not Recovered/Not Resolved]
  - Apathy [Unknown]
  - Derealisation [Unknown]
  - Amnesia [Not Recovered/Not Resolved]
  - Cotard^s syndrome [Unknown]
  - Fall [Unknown]
  - Speech disorder [Unknown]
  - Daydreaming [Unknown]

NARRATIVE: CASE EVENT DATE: 2015
